FAERS Safety Report 9974764 (Version 1)
Quarter: 2014Q1

REPORT INFORMATION
  Report Type: Report from Study
  Country: US (occurrence: US)
  Receive Date: 20140306
  Receipt Date: 20140306
  Transmission Date: 20141002
  Serious: No
  Sender: FDA-Public Use
  Company Number: US-ABBVIE-13P-163-1159100-00

PATIENT
  Age: 39 Year
  Sex: Male
  Weight: 127.12 kg

DRUGS (5)
  1. HUMIRA [Suspect]
     Indication: ARTHRITIS REACTIVE
     Dates: start: 201301, end: 201306
  2. HUMIRA [Suspect]
     Dates: start: 201306
  3. VITAMIN E [Concomitant]
     Indication: PRODUCT USED FOR UNKNOWN INDICATION
  4. METOPROLOL [Concomitant]
     Indication: PRODUCT USED FOR UNKNOWN INDICATION
  5. OMEPRAZOLE [Concomitant]
     Indication: DYSPEPSIA

REACTIONS (2)
  - Iritis [Not Recovered/Not Resolved]
  - Off label use [Not Recovered/Not Resolved]
